FAERS Safety Report 4859714-1 (Version None)
Quarter: 2005Q4

REPORT INFORMATION
  Report Type: 
  Country: None (occurrence: None)
  Receive Date: 20051215
  Receipt Date: 20051202
  Transmission Date: 20060501
  Serious: Yes (Hospitalization)
  Sender: FDA-Public Use
  Company Number: DSA_27463_2005

PATIENT
  Age: 77 Year
  Sex: Male

DRUGS (7)
  1. MONO-TILDIEM [Suspect]
     Dosage: 200 MG Q DAY PO
     Route: 048
     Dates: end: 20050824
  2. MONO-TILDIEM [Suspect]
     Dosage: 60 MG Q DAY PO
     Route: 048
     Dates: start: 20050825
  3. IMOVANE [Concomitant]
  4. HEMI-DAONIL [Concomitant]
  5. SEROPRAM [Concomitant]
  6. KARDEGIC [Concomitant]
  7. FORLAX [Concomitant]

REACTIONS (5)
  - ASTHENIA [None]
  - BRADYCARDIA [None]
  - DIZZINESS [None]
  - HYPERGLYCAEMIA [None]
  - SUPRAVENTRICULAR EXTRASYSTOLES [None]
